FAERS Safety Report 6571701-4 (Version None)
Quarter: 2010Q1

REPORT INFORMATION
  Report Type: 
  Country: None (occurrence: None)
  Receive Date: 20100205
  Receipt Date: 20100126
  Transmission Date: 20100710
  Serious: Yes (Hospitalization, Other)
  Sender: FDA-Public Use
  Company Number: AT-JNJFOC-20100109733

PATIENT
  Age: 34 Year
  Sex: Male
  Weight: 91.1 kg

DRUGS (18)
  1. RISPERDAL [Suspect]
     Indication: DRUG USE FOR UNKNOWN INDICATION
     Route: 065
  2. RISPERDAL [Suspect]
     Route: 065
  3. TRILEPTAL [Suspect]
     Indication: DRUG USE FOR UNKNOWN INDICATION
     Route: 065
  4. TRILEPTAL [Suspect]
     Route: 065
  5. TRILEPTAL [Suspect]
     Route: 065
  6. TRILEPTAL [Suspect]
     Route: 065
  7. TRILEPTAL [Suspect]
     Route: 065
  8. TRILEPTAL [Suspect]
     Route: 065
  9. ZYPREXA [Suspect]
     Indication: DRUG USE FOR UNKNOWN INDICATION
     Route: 065
  10. ZYPREXA [Suspect]
     Route: 065
  11. ZYPREXA [Suspect]
     Route: 065
  12. ZYPREXA [Suspect]
     Route: 065
  13. ZYPREXA [Suspect]
     Route: 065
  14. NOZINAN [Suspect]
     Indication: DRUG USE FOR UNKNOWN INDICATION
  15. NOZINAN [Suspect]
  16. NEXIUM [Suspect]
     Indication: DRUG USE FOR UNKNOWN INDICATION
     Route: 065
  17. TANATRIL [Suspect]
     Indication: DRUG USE FOR UNKNOWN INDICATION
     Route: 065
  18. TANATRIL [Suspect]
     Route: 065

REACTIONS (5)
  - ANTIPSYCHOTIC DRUG LEVEL BELOW THERAPEUTIC [None]
  - BLOOD CREATINE PHOSPHOKINASE INCREASED [None]
  - BLOOD TRIGLYCERIDES INCREASED [None]
  - GAMMA-GLUTAMYLTRANSFERASE INCREASED [None]
  - HYPONATRAEMIA [None]
